FAERS Safety Report 7763711-6 (Version None)
Quarter: 2011Q3

REPORT INFORMATION
  Report Type: 
  Country: None (occurrence: None)
  Receive Date: 20110921
  Receipt Date: 20110331
  Transmission Date: 20111222
  Serious: No
  Sender: FDA-Public Use
  Company Number: US-BIOGENIDEC-2011BI035614

PATIENT
  Age: 58 Year
  Sex: Female

DRUGS (1)
  1. TYSABRI [Suspect]
     Indication: MULTIPLE SCLEROSIS
     Route: 042
     Dates: start: 20101201, end: 20110228

REACTIONS (5)
  - DIARRHOEA [None]
  - PAIN [None]
  - NAUSEA [None]
  - WEIGHT INCREASED [None]
  - FATIGUE [None]
